FAERS Safety Report 4802948-2 (Version None)
Quarter: 2005Q4

REPORT INFORMATION
  Report Type: 
  Country: None (occurrence: None)
  Receive Date: 20051013
  Receipt Date: 20051003
  Transmission Date: 20060501
  Serious: Yes (Disabling)
  Sender: FDA-Public Use
  Company Number: 2005107268

PATIENT
  Sex: Male

DRUGS (1)
  1. VIAGRA [Suspect]
     Indication: ERECTILE DYSFUNCTION
     Dosage: 100  MG (50 MG, 1), ORAL
     Route: 048
     Dates: start: 20020101, end: 20050601

REACTIONS (2)
  - EYE IRRITATION [None]
  - VISUAL ACUITY REDUCED [None]
